FAERS Safety Report 20912476 (Version 8)
Quarter: 2023Q4

REPORT INFORMATION
  Report Type: Spontaneous
  Country: CA (occurrence: CA)
  Receive Date: 20220603
  Receipt Date: 20231121
  Transmission Date: 20240110
  Serious: Yes (Other)
  Sender: FDA-Public Use
  Company Number: CA-PFIZER INC-202200629714

PATIENT
  Age: 63 Year
  Sex: Male
  Weight: 115 kg

DRUGS (8)
  1. RUXIENCE [Suspect]
     Active Substance: RITUXIMAB-PVVR
     Indication: Granulomatosis with polyangiitis
     Dosage: 900 MG, WEEKLY, FOR 4 DOSES
     Route: 042
     Dates: start: 20220418, end: 20220525
  2. RUXIENCE [Suspect]
     Active Substance: RITUXIMAB-PVVR
     Dosage: 900 MG, WEEKLY, FOR 4 DOSES
     Route: 042
     Dates: start: 20220425
  3. RUXIENCE [Suspect]
     Active Substance: RITUXIMAB-PVVR
     Dosage: 900 MG, WEEKLY, FOR 4 DOSES
     Route: 042
     Dates: start: 20220518
  4. RUXIENCE [Suspect]
     Active Substance: RITUXIMAB-PVVR
     Dosage: 900 MG, WEEKLY, FOR 4 DOSES
     Route: 042
     Dates: start: 20220525
  5. RUXIENCE [Suspect]
     Active Substance: RITUXIMAB-PVVR
     Dosage: 900 MG, WEEKLY, FOR 4 DOSES
     Route: 042
     Dates: start: 20220525
  6. RUXIENCE [Suspect]
     Active Substance: RITUXIMAB-PVVR
     Dosage: 500 MG (ONE DOSE TO BE GIVEN ON NOV2022)
     Route: 042
     Dates: start: 20221107, end: 20221107
  7. RUXIENCE [Suspect]
     Active Substance: RITUXIMAB-PVVR
     Dosage: 500 MG SINGLE DOSE WEEK OF MAY 8-12, 2023
     Route: 042
     Dates: start: 20230509, end: 20230509
  8. RUXIENCE [Suspect]
     Active Substance: RITUXIMAB-PVVR
     Dosage: 500 MG, DAY 1
     Route: 042
     Dates: start: 20231113

REACTIONS (9)
  - Weight increased [Unknown]
  - Herpes zoster [Unknown]
  - Sciatica [Not Recovered/Not Resolved]
  - Off label use [Unknown]
  - Intentional product use issue [Unknown]
  - Product use issue [Unknown]
  - Off label use [Unknown]
  - Off label use [Unknown]
  - Inappropriate schedule of product administration [Unknown]

NARRATIVE: CASE EVENT DATE: 20220425
